FAERS Safety Report 10264841 (Version 2)
Quarter: 2014Q3

REPORT INFORMATION
  Report Type: Spontaneous
  Country: IT (occurrence: IT)
  Receive Date: 20140627
  Receipt Date: 20140905
  Transmission Date: 20150326
  Serious: Yes (Hospitalization)
  Sender: FDA-Public Use
  Company Number: IT-SA-2014SA080537

PATIENT
  Age: 89 Year
  Sex: Female

DRUGS (6)
  1. AMOXICILLIN/CLAVULANIC ACID [Suspect]
     Active Substance: AMOXICILLIN\CLAVULANIC ACID
     Indication: BRONCHITIS
     Route: 048
     Dates: start: 20140507, end: 20140517
  2. ZYLORIC [Suspect]
     Active Substance: ALLOPURINOL
     Indication: HYPERURICAEMIA
     Route: 048
     Dates: start: 20140501, end: 20140517
  3. CARDIOASPIRIN [Concomitant]
     Active Substance: ASPIRIN
     Indication: PROPHYLAXIS
     Route: 048
     Dates: end: 20140517
  4. OMEPRAZOLE ZENTIVA [Concomitant]
     Indication: PROPHYLAXIS
     Route: 048
     Dates: start: 20140507, end: 20140517
  5. MOVICOL [Concomitant]
     Active Substance: POLYETHYLENE GLYCOL 3350\POTASSIUM CHLORIDE\SODIUM BICARBONATE\SODIUM CHLORIDE
     Dosage: STRENGTH: 13.8 G
     Route: 048
     Dates: start: 20140512, end: 20140517
  6. CLEXANE [Suspect]
     Active Substance: ENOXAPARIN SODIUM
     Indication: THROMBOSIS PROPHYLAXIS
     Dosage: DOSE: 1 DOSAGE UNIT DAILY
     Route: 058
     Dates: start: 20140507, end: 20140517

REACTIONS (2)
  - Rash macular [Recovered/Resolved]
  - Lip exfoliation [Recovered/Resolved]

NARRATIVE: CASE EVENT DATE: 20140517
